FAERS Safety Report 23623227 (Version 3)
Quarter: 2024Q2

REPORT INFORMATION
  Report Type: Spontaneous
  Country: US (occurrence: US)
  Receive Date: 20240312
  Receipt Date: 20240619
  Transmission Date: 20240716
  Serious: Yes (Hospitalization, Other)
  Sender: FDA-Public Use
  Company Number: US-Blueprint Medicines Corporation-2700

PATIENT
  Sex: Male
  Weight: 69.916 kg

DRUGS (4)
  1. AYVAKIT [Suspect]
     Active Substance: AVAPRITINIB
     Indication: Gastrointestinal stromal tumour
     Route: 065
     Dates: start: 20240124
  2. AYVAKIT [Suspect]
     Active Substance: AVAPRITINIB
     Route: 048
     Dates: start: 20240118, end: 202404
  3. ATORVASTATIN [Suspect]
     Active Substance: ATORVASTATIN
     Indication: Lipids
     Route: 065
  4. ATORVASTATIN [Suspect]
     Active Substance: ATORVASTATIN
     Indication: Blood cholesterol

REACTIONS (10)
  - Clostridium difficile infection [Unknown]
  - Rhabdomyolysis [Unknown]
  - Atrial fibrillation [Unknown]
  - Ill-defined disorder [Recovered/Resolved]
  - Hypervolaemia [Unknown]
  - Gastrointestinal haemorrhage [Unknown]
  - Drug interaction [Unknown]
  - Chest pain [Unknown]
  - Cardiac disorder [Unknown]
  - Intentional dose omission [Unknown]
